FAERS Safety Report 10801197 (Version 1)
Quarter: 2015Q1

REPORT INFORMATION
  Report Type: Spontaneous
  Country: IT (occurrence: IT)
  Receive Date: 20150216
  Receipt Date: 20150216
  Transmission Date: 20150721
  Serious: Yes (Other)
  Sender: FDA-Public Use
  Company Number: IT-ROCHE-1538391

PATIENT
  Age: 45 Year
  Sex: Male

DRUGS (11)
  1. MABTHERA [Suspect]
     Active Substance: RITUXIMAB
     Indication: B-CELL LYMPHOMA
     Dosage: 1 VIAL 500 MG 50 ML
     Route: 042
     Dates: start: 20141222, end: 20150112
  2. CISPLATIN. [Suspect]
     Active Substance: CISPLATIN
     Indication: B-CELL LYMPHOMA
  3. CITARABINA [Suspect]
     Active Substance: CYTARABINE
     Indication: B-CELL LYMPHOMA
  4. LASIX [Concomitant]
     Active Substance: FUROSEMIDE
     Dosage: 25 MG TABLETS 30 TABLETS
     Route: 048
  5. CISPLATIN. [Suspect]
     Active Substance: CISPLATIN
     Indication: B-CELL LYMPHOMA
     Dosage: CISPLATIN HOSPIRA: 100 MG/100 ML 1 SMALL BOTTLE OF 100 ML
     Route: 042
     Dates: start: 20141218, end: 20150110
  6. CITARABINA [Suspect]
     Active Substance: CYTARABINE
     Indication: B-CELL LYMPHOMA
     Dosage: CITARABINA HOSPIRA: 1G/10 ML SOLUTION FOR INJECTION 1 VIAL FOR 10ML
     Route: 042
     Dates: start: 20141219, end: 20150111
  7. BISOPROLOL [Concomitant]
     Active Substance: BISOPROLOL
     Dosage: BISOPROLOL DOC: 1.2 MG TABLETS 28 TAB IN PVC/PVDC/AL BLISTER PACK
     Route: 048
  8. SELEPARINA [Concomitant]
     Active Substance: NADROPARIN CALCIUM
     Dosage: 7600 IU ANTIXA/0.8 ML 10 0.8 ML PRE-FILLED SYRINGE
     Route: 058
  9. RISPERIDONE. [Concomitant]
     Active Substance: RISPERIDONE
     Route: 048
  10. MABTHERA [Suspect]
     Active Substance: RITUXIMAB
     Indication: B-CELL LYMPHOMA
  11. OMEPRAZOLO [Concomitant]
     Active Substance: OMEPRAZOLE
     Route: 048

REACTIONS (3)
  - Syncope [Recovered/Resolved]
  - Vomiting [Recovered/Resolved]
  - Diarrhoea [Recovered/Resolved]

NARRATIVE: CASE EVENT DATE: 20150116
